FAERS Safety Report 11639127 (Version 1)
Quarter: 2015Q4

REPORT INFORMATION
  Report Type: Spontaneous
  Country: US (occurrence: US)
  Receive Date: 20151019
  Receipt Date: 20151019
  Transmission Date: 20160304
  Serious: No
  Sender: FDA-Public Use
  Company Number: US-AMGEN-USASP2015106225

PATIENT
  Sex: Male

DRUGS (1)
  1. ENBREL [Suspect]
     Active Substance: ETANERCEPT
     Indication: PSORIASIS
     Dosage: 50 MG ONCE WEEKLY
     Route: 058
     Dates: start: 201410

REACTIONS (2)
  - Condition aggravated [Unknown]
  - Drug dose omission [Unknown]

NARRATIVE: CASE EVENT DATE: 201510
